FAERS Safety Report 6507992-5 (Version None)
Quarter: 2009Q4

REPORT INFORMATION
  Report Type: 
  Country: None (occurrence: None)
  Receive Date: 20091221
  Receipt Date: 20091208
  Transmission Date: 20100525
  Serious: Yes (Hospitalization)
  Sender: FDA-Public Use
  Company Number: CHPA2009FR23401

PATIENT
  Age: 11 Year
  Sex: Male
  Weight: 34 kg

DRUGS (3)
  1. SCOPOLAMINE [Suspect]
     Indication: SALIVARY HYPERSECRETION
     Dosage: 1 MG, 72 HOURS
     Route: 062
  2. DEPAKENE [Concomitant]
  3. OMEPRAZOLE [Concomitant]

REACTIONS (2)
  - EPILEPSY [None]
  - OFF LABEL USE [None]
